FAERS Safety Report 8590792-2 (Version None)
Quarter: 2012Q3

REPORT INFORMATION
  Report Type: 
  Country: None (occurrence: None)
  Receive Date: 20120813
  Receipt Date: 20120802
  Transmission Date: 20120928
  Serious: Yes (Hospitalization)
  Sender: FDA-Public Use
  Company Number: DE-ELI_LILLY_AND_COMPANY-DE201208000598

PATIENT
  Age: 67 Year
  Sex: Female
  Weight: 75 kg

DRUGS (4)
  1. ASPIRIN [Concomitant]
  2. PRASUGREL HYDROCHLORIDE [Suspect]
     Indication: ACUTE MYOCARDIAL INFARCTION
     Dosage: 60 MG, UNK
     Route: 048
     Dates: start: 20120729
  3. REOPRO [Concomitant]
  4. PRASUGREL HYDROCHLORIDE [Suspect]
     Dosage: 10 MG, UNK
     Route: 048
     Dates: start: 20120729

REACTIONS (1)
  - CARDIAC TAMPONADE [None]
